FAERS Safety Report 15498670 (Version 1)
Quarter: 2018Q4

REPORT INFORMATION
  Report Type: Spontaneous
  Country: US (occurrence: US)
  Receive Date: 20181015
  Receipt Date: 20181015
  Transmission Date: 20190205
  Serious: Yes (Other)
  Sender: FDA-Public Use
  Company Number: None

PATIENT
  Age: 71 Year
  Sex: Male
  Weight: 55.35 kg

DRUGS (17)
  1. VITAMIN K2 [Concomitant]
     Active Substance: MENAQUINONE 6
  2. LUTEIN [Concomitant]
     Active Substance: LUTEIN
  3. MELATONIN [Concomitant]
     Active Substance: MELATONIN
  4. SELENIUM [Concomitant]
     Active Substance: SELENIUM
  5. YEAST BALANCE ICS [Concomitant]
  6. COQ10 [Concomitant]
     Active Substance: UBIDECARENONE
  7. LYSINE HCL [Concomitant]
  8. VITAMIN D3 [Concomitant]
     Active Substance: CHOLECALCIFEROL
  9. CAL-MAG ZINC II [Concomitant]
  10. SPRYCEL [Suspect]
     Active Substance: DASATINIB
     Indication: ACUTE MYELOID LEUKAEMIA
     Route: 048
     Dates: start: 20180702, end: 20181015
  11. EGCG [Concomitant]
     Active Substance: EPIGALLOCATECHIN GALLATE
  12. PROBIOTIC ACIDOPHILUS [Concomitant]
     Active Substance: LACTOBACILLUS ACIDOPHILUS
  13. GRAPE SEED EXTRACT [Concomitant]
     Active Substance: DIETARY SUPPLEMENT\GRAPE SEED EXTRACT
  14. CEFUROXIME AXETIL. [Concomitant]
     Active Substance: CEFUROXIME AXETIL
  15. MULTIVITAMIN [Concomitant]
     Active Substance: VITAMINS
  16. FISH OIL CONCENTRATE [Concomitant]
     Active Substance: FISH OIL
  17. ARTICHOKE EXTRACT [Concomitant]

REACTIONS (1)
  - Disease progression [None]
